FAERS Safety Report 6185636-2 (Version None)
Quarter: 2009Q2

REPORT INFORMATION
  Report Type: 
  Country: None (occurrence: None)
  Receive Date: 20090511
  Receipt Date: 20090504
  Transmission Date: 20091009
  Serious: Yes (Other)
  Sender: FDA-Public Use
  Company Number: US-ABBOTT-09P-163-0571836-00

PATIENT
  Sex: Female
  Weight: 83.536 kg

DRUGS (5)
  1. SYNTHROID [Suspect]
     Indication: THYROIDECTOMY
     Dosage: CRUSHED WITH WATER
     Dates: start: 20090501
  2. SYNTHROID [Suspect]
     Indication: BLOOD THYROID STIMULATING HORMONE INCREASED
     Route: 048
     Dates: start: 20080901, end: 20090501
  3. SYNTHROID [Suspect]
     Dosage: UNKNOWN DOSE
     Route: 048
     Dates: start: 20071001, end: 20071101
  4. UNKNOWN OTHER OTC MEDICATIONS [Concomitant]
     Indication: DRUG USE FOR UNKNOWN INDICATION
  5. UNKNOWN SUPPLEMENTS [Concomitant]
     Indication: DRUG USE FOR UNKNOWN INDICATION

REACTIONS (2)
  - BLOOD THYROID STIMULATING HORMONE INCREASED [None]
  - OVERWEIGHT [None]
